FAERS Safety Report 7358966-6 (Version None)
Quarter: 2011Q1

REPORT INFORMATION
  Report Type: 
  Country: None (occurrence: None)
  Receive Date: 20110310
  Receipt Date: 20110303
  Transmission Date: 20110831
  Serious: Yes (Death)
  Sender: FDA-Public Use
  Company Number: UTC-005522

PATIENT
  Age: 62 Year
  Sex: Female

DRUGS (2)
  1. TYVASO [Suspect]
     Dosage: 18 TO 54 MICROGRAMS (4 IN 1 D), INHALATION
     Route: 055
  2. TRACLEER [Concomitant]

REACTIONS (1)
  - DEATH [None]
